FAERS Safety Report 21087613 (Version 1)
Quarter: 2022Q3

REPORT INFORMATION
  Report Type: Spontaneous
  Country: US (occurrence: US)
  Receive Date: 20220715
  Receipt Date: 20220715
  Transmission Date: 20221026
  Serious: Yes (Other)
  Sender: FDA-Public Use
  Company Number: US-MYLANLABS-2022M1078480

PATIENT
  Age: 6 Decade
  Sex: Female

DRUGS (4)
  1. CIMETIDINE [Suspect]
     Active Substance: CIMETIDINE
     Indication: Papilloma conjunctival
     Dosage: 800 MILLIGRAM, TID; RECEIVED CIMETIDINE THREE TIMES DAILY
     Route: 048
  2. FLUOROURACIL [Suspect]
     Active Substance: FLUOROURACIL
     Indication: Papilloma conjunctival
     Dosage: UNK UNK, QID; RECEIVED FLUOROURACIL 4 TIMES DAILY FOR 2 WEEK INTERVALS WITH 2 WEEK SUSPENSION PERIOD
     Route: 061
  3. FLUOROURACIL [Suspect]
     Active Substance: FLUOROURACIL
     Indication: Papilloma
     Dosage: UNK; RECEIVED FLUOROURACIL 25MG/0.5ML, 2 WEEKS APART AND TOTAL OF 4 INJECTIONS
     Route: 026
  4. GARDASIL 9 [Suspect]
     Active Substance: HUMAN PAPILLOMAVIRUS TYPE 11 L1 CAPSID PROTEIN ANTIGEN\HUMAN PAPILLOMAVIRUS TYPE 16 L1 CAPSID PROTEI
     Indication: Papilloma conjunctival
     Dosage: UNK; RECEIVED 2 DOSES OF GARDASIL-9 VACCINE, 6 WEEK APART
     Route: 030

REACTIONS (4)
  - Drug ineffective [Unknown]
  - Nausea [Unknown]
  - Conjunctivitis bacterial [Unknown]
  - Off label use [Unknown]
